FAERS Safety Report 15108798 (Version 1)
Quarter: 2018Q3

REPORT INFORMATION
  Report Type: Report from Study
  Country: None (occurrence: PR)
  Receive Date: 20180705
  Receipt Date: 20180705
  Transmission Date: 20181010
  Serious: Yes (Other)
  Sender: FDA-Public Use
  Company Number: PR-ABBVIE-18K-131-2399433-00

PATIENT
  Sex: Female

DRUGS (1)
  1. HUMIRA [Suspect]
     Active Substance: ADALIMUMAB
     Indication: PRODUCT USED FOR UNKNOWN INDICATION
     Route: 058

REACTIONS (5)
  - Nervousness [Not Recovered/Not Resolved]
  - Uterine leiomyoma [Unknown]
  - Postmenopausal haemorrhage [Unknown]
  - Stress [Not Recovered/Not Resolved]
  - Surgery [Unknown]
